FAERS Safety Report 7114363-X (Version None)
Quarter: 2010Q4

REPORT INFORMATION
  Report Type: 
  Country: None (occurrence: None)
  Receive Date: 20101119
  Receipt Date: 20101103
  Transmission Date: 20110411
  Serious: Yes (Hospitalization)
  Sender: FDA-Public Use
  Company Number: PHHO2006CA09856

PATIENT
  Sex: Female
  Weight: 12.2 kg

DRUGS (1)
  1. ELIDEL [Suspect]
     Indication: DERMATITIS ATOPIC
     Dosage: PRN
     Route: 061
     Dates: start: 20040726

REACTIONS (10)
  - ADENOIDAL HYPERTROPHY [None]
  - ADENOIDECTOMY [None]
  - EAR TUBE INSERTION [None]
  - OTITIS MEDIA [None]
  - RHINORRHOEA [None]
  - SINUSITIS [None]
  - SLEEP APNOEA SYNDROME [None]
  - SNORING [None]
  - TONSILLAR HYPERTROPHY [None]
  - TONSILLECTOMY [None]
